FAERS Safety Report 10695941 (Version 1)
Quarter: 2015Q1

REPORT INFORMATION
  Report Type: Report from Study
  Country: BR (occurrence: BR)
  Receive Date: 20150107
  Receipt Date: 20150107
  Transmission Date: 20150721
  Serious: Yes (Other)
  Sender: FDA-Public Use
  Company Number: PHHY2015BR001016

PATIENT
  Sex: Male
  Weight: 72 kg

DRUGS (3)
  1. EXELON PATCH [Suspect]
     Active Substance: RIVASTIGMINE
     Indication: COGNITIVE DISORDER
     Dosage: 9.5 MG (PATCH 10CM2), QD
     Route: 062
  2. EXELON PATCH [Suspect]
     Active Substance: RIVASTIGMINE
     Indication: CEREBROVASCULAR DISORDER
     Dosage: 4.6 MG (PATCH 5CM2), QD
     Route: 062
     Dates: start: 20140809
  3. EXELON PATCH [Suspect]
     Active Substance: RIVASTIGMINE
     Indication: NERVOUS SYSTEM DISORDER

REACTIONS (8)
  - Anxiety [Recovering/Resolving]
  - Nervousness [Recovering/Resolving]
  - Insomnia [Recovering/Resolving]
  - Urinary retention [Recovering/Resolving]
  - Urinary tract infection [Recovering/Resolving]
  - Product use issue [Unknown]
  - Restlessness [Recovering/Resolving]
  - Headache [Recovering/Resolving]
